FAERS Safety Report 17256416 (Version 1)
Quarter: 2020Q1

REPORT INFORMATION
  Report Type: Spontaneous
  Country: US (occurrence: US)
  Receive Date: 20200110
  Receipt Date: 20200110
  Transmission Date: 20200409
  Serious: No
  Sender: FDA-Public Use
  Company Number: US-TEVA-2019-US-1161885

PATIENT
  Age: 59 Year
  Sex: Female

DRUGS (16)
  1. VITAMIN B COMPLEX [Concomitant]
     Active Substance: CYANOCOBALAMIN\DEXPANTHENOL\NIACINAMIDE\PYRIDOXINE HYDROCHLORIDE\RIBOFLAVIN 5^-PHOSPHATE SODIUM\THIAMINE HYDROCHLORIDE\VITAMIN B COMPLEX
  2. GLUCOSAMINE [Concomitant]
     Active Substance: GLUCOSAMINE
  3. INDOMETACIN [Concomitant]
     Active Substance: INDOMETHACIN
  4. PROPRANOLOL [Concomitant]
     Active Substance: PROPRANOLOL HYDROCHLORIDE
  5. SYNTHROID [Concomitant]
     Active Substance: LEVOTHYROXINE SODIUM
  6. AJOVY [Suspect]
     Active Substance: FREMANEZUMAB-VFRM
     Dosage: 3RD DOSE
     Route: 065
  7. AMITRIPTYLINE [Concomitant]
     Active Substance: AMITRIPTYLINE
  8. PREMARIN [Concomitant]
     Active Substance: ESTROGENS, CONJUGATED
  9. TIZANIDINE. [Concomitant]
     Active Substance: TIZANIDINE
  10. CELECOXIB. [Concomitant]
     Active Substance: CELECOXIB
  11. NORCO [Concomitant]
     Active Substance: ACETAMINOPHEN\HYDROCODONE BITARTRATE
  12. DICLOFENAC GEL [Concomitant]
     Active Substance: DICLOFENAC
  13. IBANDRONATE [Concomitant]
     Active Substance: IBANDRONATE SODIUM
  14. VITAMIN D [Concomitant]
     Active Substance: VITAMIN D NOS
  15. BACLOFEN. [Concomitant]
     Active Substance: BACLOFEN
  16. ESCITALOPRAM [Concomitant]
     Active Substance: ESCITALOPRAM OXALATE

REACTIONS (3)
  - Injection site pruritus [Recovered/Resolved]
  - Injection site erythema [Recovered/Resolved]
  - Injection site swelling [Recovered/Resolved]

NARRATIVE: CASE EVENT DATE: 20191219
